FAERS Safety Report 18955909 (Version 3)
Quarter: 2021Q2

REPORT INFORMATION
  Report Type: Spontaneous
  Country: GB (occurrence: GB)
  Receive Date: 20210301
  Receipt Date: 20210601
  Transmission Date: 20210717
  Serious: Yes (Life-Threatening, Hospitalization, Disabling, Other)
  Sender: FDA-Public Use
  Company Number: GB-SA-2021SA016804

PATIENT
  Age: 42 Year
  Sex: Female
  Weight: 98 kg

DRUGS (104)
  1. DOCETAXEL. [Suspect]
     Active Substance: DOCETAXEL
     Indication: BREAST CANCER METASTATIC
     Dosage: 160 MG
     Route: 042
     Dates: start: 20160718, end: 20160718
  2. TRASTUZUMAB. [Suspect]
     Active Substance: TRASTUZUMAB
     Indication: BREAST CANCER METASTATIC
     Dosage: 798 MG, QM
     Route: 042
     Dates: start: 20160718, end: 20160718
  3. TRASTUZUMAB. [Suspect]
     Active Substance: TRASTUZUMAB
     Dosage: 588 MG, QM
     Route: 042
     Dates: start: 20160808, end: 20160808
  4. TRASTUZUMAB. [Suspect]
     Active Substance: TRASTUZUMAB
     Dosage: 609 MG, QM
     Route: 042
     Dates: start: 20160830, end: 20160830
  5. DOXYCYCLINE. [Suspect]
     Active Substance: DOXYCYCLINE
     Dosage: 160 MG, QM
     Route: 042
     Dates: start: 20160718, end: 20160718
  6. ZOPICLONE [Concomitant]
     Active Substance: ZOPICLONE
     Dosage: UNK
  7. TINZAPARIN [Concomitant]
     Active Substance: TINZAPARIN
     Dosage: UNK
  8. TOLTERODINE [Concomitant]
     Active Substance: TOLTERODINE
     Indication: ACUTE KIDNEY INJURY
     Dosage: UNK
  9. GTN [Concomitant]
     Active Substance: NITROGLYCERIN
     Dosage: UNK
  10. MAGNASPARTATE [Concomitant]
     Indication: BLOOD MAGNESIUM DECREASED
     Dosage: 10 MMOL
     Route: 065
     Dates: start: 20160908
  11. TAUROLOCK [Concomitant]
     Active Substance: TAUROLIDINE
     Dosage: UNK
  12. ONDANSETRON [Concomitant]
     Active Substance: ONDANSETRON
     Indication: NAUSEA
     Dosage: 4 MG
     Route: 048
     Dates: start: 20160908
  13. HYDROCORTISONE. [Concomitant]
     Active Substance: HYDROCORTISONE
     Indication: NEUTROPENIC SEPSIS
     Dosage: UNK
  14. ALTEPLASE. [Concomitant]
     Active Substance: ALTEPLASE
     Indication: COLITIS ISCHAEMIC
     Dosage: UNK
     Route: 065
  15. BUSCOPAN [Concomitant]
     Active Substance: BUTYLSCOPOLAMINE BROMIDE
     Indication: COLITIS ISCHAEMIC
     Dosage: UNK
  16. CHLORHEXIDINE [Concomitant]
     Active Substance: CHLORHEXIDINE
     Indication: COLITIS ISCHAEMIC
     Dosage: UNK
  17. DALTEPARIN [Concomitant]
     Active Substance: DALTEPARIN
     Indication: ACUTE KIDNEY INJURY
     Dosage: UNK
  18. ERDOTIN [Concomitant]
     Active Substance: ERDOSTEINE
     Indication: PNEUMONIA
     Dosage: UNK
  19. NASEPTIN [Concomitant]
     Active Substance: CHLORHEXIDINE HYDROCHLORIDE\NEOMYCIN SULFATE
     Indication: COLITIS ISCHAEMIC
     Dosage: UNK
  20. RAMIPRIL. [Concomitant]
     Active Substance: RAMIPRIL
     Indication: ACUTE KIDNEY INJURY
     Dosage: UNK
  21. SODIUM CITRATE. [Concomitant]
     Active Substance: SODIUM CITRATE
     Dosage: UNK
  22. TAZOCIN [Concomitant]
     Active Substance: PIPERACILLIN SODIUM\TAZOBACTAM SODIUM
     Dosage: UNK
  23. HARTMANS [Concomitant]
     Indication: NEUTROPENIC SEPSIS
     Dosage: UNK
  24. DOXYCYCLINE. [Suspect]
     Active Substance: DOXYCYCLINE
     Indication: BREAST CANCER METASTATIC
     Dosage: 160 MG, QM
     Route: 042
     Dates: start: 20160708, end: 20160708
  25. PARACETAMOL [Concomitant]
     Active Substance: ACETAMINOPHEN
     Indication: PAIN
     Dosage: 1 G
     Route: 048
     Dates: start: 20160908
  26. CYCLIZINE [Concomitant]
     Active Substance: CYCLIZINE
     Indication: NAUSEA
     Dosage: 50 MG, PRN
     Route: 048
     Dates: start: 20160908
  27. SALBUTAMOL [Concomitant]
     Active Substance: ALBUTEROL
     Indication: PNEUMONIA
     Dosage: UNK
  28. MORPHINE [Concomitant]
     Active Substance: MORPHINE
     Dosage: UNK
  29. MAGNASPARTATE [Concomitant]
     Dosage: UNK
  30. ARGATROBAN. [Concomitant]
     Active Substance: ARGATROBAN
     Indication: COLITIS ISCHAEMIC
     Dosage: UNK
  31. BONJELA ADULT [Concomitant]
     Indication: NEUTROPENIC SEPSIS
     Dosage: UNK
  32. SODIUM LACTATE. [Concomitant]
     Active Substance: SODIUM LACTATE
     Dosage: UNK
  33. MORPHINE SULPHATE [Concomitant]
     Active Substance: MORPHINE SULFATE
     Dosage: UNK
  34. NASEPTIN [Concomitant]
     Active Substance: CHLORHEXIDINE HYDROCHLORIDE\NEOMYCIN SULFATE
     Indication: COLITIS ISCHAEMIC
     Dosage: UNK
  35. DOXYCYCLINE. [Concomitant]
     Active Substance: DOXYCYCLINE
     Dosage: UNK
  36. DOCETAXEL. [Suspect]
     Active Substance: DOCETAXEL
     Dosage: 164 MG, QM
     Route: 042
     Dates: start: 20160830, end: 20160830
  37. MAGNESIUM SULFATE. [Concomitant]
     Active Substance: MAGNESIUM SULFATE
     Dosage: UNK
  38. LOPERAMIDE [Concomitant]
     Active Substance: LOPERAMIDE
     Indication: DIARRHOEA
     Dosage: 2 MILLIGRAM, UP TO 4 TIMES A DAY IF NEEDED FOR LOOSE
     Route: 048
     Dates: start: 20161230
  39. GLUCOGEL [Concomitant]
     Indication: NEUTROPENIC SEPSIS
     Dosage: UNK
  40. ERDOTIN [Concomitant]
     Active Substance: ERDOSTEINE
     Indication: PNEUMONIA
     Dosage: UNK
  41. FONDAPARINUX [Concomitant]
     Active Substance: FONDAPARINUX
     Indication: COLITIS ISCHAEMIC
     Dosage: UNK
  42. GLUCOSE [Concomitant]
     Active Substance: DEXTROSE
     Dosage: UNK
  43. HEPARIN [Concomitant]
     Active Substance: HEPARIN SODIUM
     Indication: ACUTE KIDNEY INJURY
     Dosage: UNK
  44. METARAMINOL [Concomitant]
     Active Substance: METARAMINOL
     Indication: COLITIS ISCHAEMIC
     Dosage: UNK
  45. METOCLOPRAMIDE. [Concomitant]
     Active Substance: METOCLOPRAMIDE
     Indication: COLITIS ISCHAEMIC
     Dosage: UNK
  46. METRONIDAZOLE. [Concomitant]
     Active Substance: METRONIDAZOLE
     Indication: COLITIS ISCHAEMIC
     Dosage: UNK
  47. MIDAZOLAM. [Concomitant]
     Active Substance: MIDAZOLAM
     Indication: COLITIS ISCHAEMIC
     Dosage: UNK
  48. OMEPRAZOLE. [Concomitant]
     Active Substance: OMEPRAZOLE
     Indication: COLITIS ISCHAEMIC
     Dosage: UNK
  49. TEICOPLANIN [Concomitant]
     Active Substance: TEICOPLANIN
     Indication: COLITIS ISCHAEMIC
     Dosage: UNK
  50. PERTUZUMAB. [Suspect]
     Active Substance: PERTUZUMAB
     Indication: HER2 POSITIVE BREAST CANCER
     Dosage: 840 MG, LOADING DOSE
     Route: 042
     Dates: start: 20160718, end: 20160718
  51. POTASSIUM CHLORIDE. [Concomitant]
     Active Substance: POTASSIUM CHLORIDE
     Dosage: UNK
  52. TRANEXAMIC ACID. [Concomitant]
     Active Substance: TRANEXAMIC ACID
     Dosage: UNK
  53. LEVOMEPROMAZINE [Concomitant]
     Active Substance: LEVOMEPROMAZINE
     Dosage: UNK
  54. OXYNORM [Concomitant]
     Active Substance: OXYCODONE HYDROCHLORIDE
     Indication: PAIN
     Dosage: UNK
  55. FLUCONAZOLE. [Concomitant]
     Active Substance: FLUCONAZOLE
     Indication: NEUTROPENIC SEPSIS
     Dosage: UNK
  56. SANDOCAL 1000 [Concomitant]
     Indication: ACUTE KIDNEY INJURY
     Dosage: UNK
  57. VASOPRESSIN. [Concomitant]
     Active Substance: VASOPRESSIN
     Indication: NEUTROPENIC SEPSIS
     Dosage: UNK
  58. DOXYCYCLINE. [Suspect]
     Active Substance: DOXYCYCLINE
     Dosage: 164 MG, QM
     Route: 042
     Dates: start: 20160830, end: 20160830
  59. PERTUZUMAB. [Suspect]
     Active Substance: PERTUZUMAB
     Dosage: 840MG FIRST DOSE THEN 420MG DOSAGE FORM: INFUSION, SOLUTION840 MG, LOADING DOSE
     Route: 042
     Dates: start: 20160808, end: 20160808
  60. PERTUZUMAB. [Suspect]
     Active Substance: PERTUZUMAB
     Dosage: 420 MG
     Route: 042
     Dates: start: 20160830, end: 20160830
  61. CITALOPRAM [Concomitant]
     Active Substance: CITALOPRAM HYDROBROMIDE
     Indication: DEPRESSION
     Dosage: 20 MG, QD
     Route: 048
     Dates: start: 20160921
  62. DANAPAROID [Concomitant]
     Active Substance: DANAPAROID
     Dosage: UNK
  63. OXYNORM [Concomitant]
     Active Substance: OXYCODONE HYDROCHLORIDE
     Dosage: UNK
  64. DIHYDROCODEINE [Concomitant]
     Active Substance: DIHYDROCODEINE
     Indication: PAIN
     Dosage: 30 MG
     Route: 048
     Dates: start: 20160908
  65. MAGNESIUM ASPARTATE [Concomitant]
     Active Substance: MAGNESIUM ASPARTATE
  66. ALFENTANIL. [Concomitant]
     Active Substance: ALFENTANIL
     Indication: PRODUCT USED FOR UNKNOWN INDICATION
     Dosage: UNK
  67. BUSCOPAN [Concomitant]
     Active Substance: BUTYLSCOPOLAMINE BROMIDE
     Indication: COLITIS ISCHAEMIC
     Dosage: UNK
  68. FILGRASTIM [Concomitant]
     Active Substance: FILGRASTIM
     Indication: NEUTROPENIC SEPSIS
     Dosage: UNK
  69. FRAGMIN [Concomitant]
     Active Substance: DALTEPARIN SODIUM
     Indication: ABDOMINAL PAIN
     Dosage: UNK
  70. GLUCOSE [Concomitant]
     Active Substance: DEXTROSE
     Dosage: UNK
     Route: 042
  71. ORAMORPH SR SUSTAINED RELEASE [Concomitant]
     Active Substance: MORPHINE SULFATE
     Dosage: UNK
  72. TAUROLIDINE [Concomitant]
     Active Substance: TAUROLIDINE
     Dosage: UNK
  73. SANDOL P [Concomitant]
     Active Substance: PHENYLEPHRINE HYDROCHLORIDE\TROPICAMIDE
     Indication: ACUTE KIDNEY INJURY
  74. TRASTUZUMAB. [Suspect]
     Active Substance: TRASTUZUMAB
     Dosage: 420 MG
     Route: 042
     Dates: start: 20160808, end: 20160808
  75. DOXYCYCLINE. [Suspect]
     Active Substance: DOXYCYCLINE
     Dosage: 160 MG, QM
     Route: 042
     Dates: start: 20160808, end: 20160808
  76. NOREPINEPHRINE. [Concomitant]
     Active Substance: NOREPINEPHRINE
     Dosage: UNK
  77. CLOPIDOGREL [Concomitant]
     Active Substance: CLOPIDOGREL BISULFATE
     Indication: PNEUMONIA
     Dosage: UNK
  78. FLUCLOXACILLIN [Concomitant]
     Active Substance: FLUCLOXACILLIN
     Dosage: UNK
  79. ASPIRIN KOMPLEX [Concomitant]
     Indication: COLITIS ISCHAEMIC
     Dosage: UNK
  80. CHLORPHENAMINE [Concomitant]
     Active Substance: CHLORPHENIRAMINE MALEATE
     Indication: NEUTROPENIC SEPSIS
     Dosage: UNK
  81. DEXTROSE. [Concomitant]
     Active Substance: DEXTROSE
     Dosage: UNK
  82. ERYTHROMYCIN. [Concomitant]
     Active Substance: ERYTHROMYCIN
     Indication: NEUTROPENIC SEPSIS
     Dosage: UNK
  83. POTASSIUM BICARBONATE. [Concomitant]
     Active Substance: POTASSIUM BICARBONATE
     Indication: ACUTE KIDNEY INJURY
     Dosage: UNK
  84. MEROPENEM. [Concomitant]
     Active Substance: MEROPENEM
     Dosage: UNK
  85. FRUSEMIDE?BC [Concomitant]
     Indication: ACUTE KIDNEY INJURY
     Dosage: UNK
  86. MAGNASPARTATE [Concomitant]
     Indication: BLOOD MAGNESIUM DECREASED
     Dosage: UNK
  87. BISOPROLOL [Concomitant]
     Active Substance: BISOPROLOL
     Indication: ACUTE KIDNEY INJURY
     Dosage: UNK
  88. CIPROFLOXACIN. [Concomitant]
     Active Substance: CIPROFLOXACIN
     Indication: NEUTROPENIC SEPSIS
     Dosage: UNK
  89. DIAZEPAM. [Concomitant]
     Active Substance: DIAZEPAM
     Indication: COLITIS ISCHAEMIC
     Dosage: UNK
     Route: 048
  90. FRAGMIN [Concomitant]
     Active Substance: DALTEPARIN SODIUM
     Indication: VOMITING
     Dosage: UNK
  91. GENTAMICIN. [Concomitant]
     Active Substance: GENTAMICIN
     Indication: PRODUCT USED FOR UNKNOWN INDICATION
     Dosage: UNK
  92. CALCIUM CHLORIDE. [Concomitant]
     Active Substance: CALCIUM CHLORIDE
     Dosage: UNK
  93. LANSOPRAZOLE. [Concomitant]
     Active Substance: LANSOPRAZOLE
     Indication: COLITIS ISCHAEMIC
     Dosage: 30 MG, QD
     Route: 048
     Dates: start: 20160908
  94. NORADRENALINE PCH [Concomitant]
     Dosage: UNK
  95. PROPOFOL. [Concomitant]
     Active Substance: PROPOFOL
     Indication: COLITIS ISCHAEMIC
     Dosage: UNK
  96. TAZOCIN [Concomitant]
     Active Substance: PIPERACILLIN SODIUM\TAZOBACTAM SODIUM
     Indication: NEUTROPENIC SEPSIS
     Dosage: UNK
  97. DURAMORPH [Concomitant]
     Active Substance: MORPHINE SULFATE
     Dosage: UNK
  98. DOCETAXEL. [Suspect]
     Active Substance: DOCETAXEL
     Dosage: 160 MG, QM
     Route: 042
     Dates: start: 20160808, end: 20160808
  99. LETROZOLE. [Suspect]
     Active Substance: LETROZOLE
     Indication: HER2 POSITIVE BREAST CANCER
     Dosage: 2.5 MG, QD
     Route: 048
     Dates: start: 20170124
  100. POTASSIUM CHLORIDE. [Concomitant]
     Active Substance: POTASSIUM CHLORIDE
     Dosage: UNK
  101. CODEINE [Concomitant]
     Active Substance: CODEINE
     Dosage: UNK
  102. CALCIUM GLUCONATE. [Concomitant]
     Active Substance: CALCIUM GLUCONATE
     Indication: COLITIS ISCHAEMIC
     Dosage: UNK
  103. EPOPROSTENOL. [Concomitant]
     Active Substance: EPOPROSTENOL
     Indication: ACUTE KIDNEY INJURY
     Dosage: UNK
  104. ERDOSTEINE [Concomitant]
     Active Substance: ERDOSTEINE
     Dosage: UNK

REACTIONS (10)
  - Neutropenic sepsis [Recovered/Resolved]
  - Colitis ischaemic [Recovered/Resolved]
  - Perforation [Recovering/Resolving]
  - Pneumonia [Recovered/Resolved]
  - Abdominal pain [Recovered/Resolved with Sequelae]
  - Vomiting [Recovered/Resolved with Sequelae]
  - Colitis [Recovered/Resolved]
  - Peritonitis [Recovering/Resolving]
  - Acute kidney injury [Recovered/Resolved]
  - Diarrhoea [Recovering/Resolving]

NARRATIVE: CASE EVENT DATE: 20160907
